FAERS Safety Report 18202886 (Version 3)
Quarter: 2021Q1

REPORT INFORMATION
  Report Type: Report from Study
  Country: US (occurrence: US)
  Receive Date: 20200827
  Receipt Date: 20210215
  Transmission Date: 20210419
  Serious: Yes (Hospitalization, Other)
  Sender: FDA-Public Use
  Company Number: NVSC2020US231155

PATIENT
  Sex: Male

DRUGS (1)
  1. ENTRESTO [Suspect]
     Active Substance: SACUBITRIL\VALSARTAN
     Indication: PRODUCT USED FOR UNKNOWN INDICATION
     Dosage: UNK UNK, UNKNOWN
     Route: 065
     Dates: start: 202001

REACTIONS (15)
  - Atrial fibrillation [Unknown]
  - Ocular discomfort [Unknown]
  - Product dose omission issue [Unknown]
  - Dizziness [Unknown]
  - Shock [Unknown]
  - Blood potassium increased [Unknown]
  - Exophthalmos [Unknown]
  - Eye irritation [Unknown]
  - Thyroid disorder [Unknown]
  - Basedow^s disease [Unknown]
  - Peripheral swelling [Unknown]
  - Inappropriate schedule of product administration [Unknown]
  - Blood pressure abnormal [Unknown]
  - Wrong technique in product usage process [Unknown]
  - Product prescribing error [Unknown]
